FAERS Safety Report 20698150 (Version 2)
Quarter: 2023Q1

REPORT INFORMATION
  Report Type: Spontaneous
  Country: US (occurrence: US)
  Receive Date: 20220412
  Receipt Date: 20230228
  Transmission Date: 20230418
  Serious: Yes (Other)
  Sender: FDA-Public Use
  Company Number: US-CELLTRION INC.-2022US004355

PATIENT

DRUGS (1)
  1. INFLECTRA [Suspect]
     Active Substance: INFLIXIMAB-DYYB
     Indication: Product used for unknown indication
     Dosage: 400 (4 VIALS), EVERY 8 WEEKS
     Route: 065

REACTIONS (4)
  - Loss of consciousness [Unknown]
  - Refusal of treatment by patient [Unknown]
  - Insurance issue [Unknown]
  - Maternal exposure during pregnancy [Unknown]
